FAERS Safety Report 20190035 (Version 1)
Quarter: 2021Q4

REPORT INFORMATION
  Report Type: Other
  Country: None (occurrence: A1)
  Receive Date: 20211215
  Receipt Date: 20211215
  Transmission Date: 20220304
  Serious: Yes (Other)
  Sender: FDA-Public Use
  Company Number: A1-Acella Pharmaceuticals, LLC-2123054

PATIENT
  Age: 20 Year
  Sex: Male
  Weight: 58 kg

DRUGS (8)
  1. GABAPENTIN [Suspect]
     Active Substance: GABAPENTIN
     Indication: Headache
     Route: 065
  2. PROPOFOL [Suspect]
     Active Substance: PROPOFOL
     Route: 065
  3. FENTANYL [Suspect]
     Active Substance: FENTANYL
     Route: 065
  4. ROCURONIUM BROMIDE [Suspect]
     Active Substance: ROCURONIUM BROMIDE
     Route: 065
  5. SEVOFLURANE [Suspect]
     Active Substance: SEVOFLURANE
     Route: 065
  6. TOPIRAMATE [Suspect]
     Active Substance: TOPIRAMATE
     Route: 065
  7. METOCLOPRAMIDE [Suspect]
     Active Substance: METOCLOPRAMIDE
     Route: 042
  8. ONDANSETRON [Suspect]
     Active Substance: ONDANSETRON
     Route: 065

REACTIONS (20)
  - Hyperthermia [Unknown]
  - Extrapyramidal disorder [Unknown]
  - Hyperthermia malignant [Unknown]
  - Neuroleptic malignant syndrome [Unknown]
  - Serotonin syndrome [Unknown]
  - Nausea [Unknown]
  - Abdominal pain [Unknown]
  - Ataxia [Unknown]
  - Dysarthria [Unknown]
  - Headache [Unknown]
  - Rash [Unknown]
  - Muscle spasms [Recovered/Resolved]
  - Dyskinesia [Unknown]
  - Haemodynamic instability [Unknown]
  - Tachycardia [Unknown]
  - Tachypnoea [Unknown]
  - Hypertension [Unknown]
  - Alkalosis [Unknown]
  - Blood lactic acid increased [Unknown]
  - Pyrexia [Unknown]
